FAERS Safety Report 22120501 (Version 1)
Quarter: 2023Q1

REPORT INFORMATION
  Report Type: Spontaneous
  Country: FR (occurrence: None)
  Receive Date: 20230321
  Receipt Date: 20230321
  Transmission Date: 20230417
  Serious: Yes (Hospitalization)
  Sender: FDA-Public Use
  Company Number: 2023A061737

PATIENT
  Age: 53 Year
  Sex: Female
  Weight: 97.4 kg

DRUGS (1)
  1. XIGDUO XR [Suspect]
     Active Substance: DAPAGLIFLOZIN PROPANEDIOL\METFORMIN HYDROCHLORIDE
     Indication: Diabetes mellitus
     Route: 048
     Dates: start: 20220524, end: 20230303

REACTIONS (1)
  - Groin abscess [Recovering/Resolving]

NARRATIVE: CASE EVENT DATE: 20230127
